FAERS Safety Report 17745191 (Version 1)
Quarter: 2020Q2

REPORT INFORMATION
  Report Type: Spontaneous
  Country: BR (occurrence: BR)
  Receive Date: 20200505
  Receipt Date: 20200505
  Transmission Date: 20200714
  Serious: Yes (Hospitalization)
  Sender: FDA-Public Use
  Company Number: BR-ENDO PHARMACEUTICALS INC-2020-003531

PATIENT
  Age: 36 Week

DRUGS (1)
  1. CABERGOLINE. [Suspect]
     Active Substance: CABERGOLINE
     Indication: PRODUCT USED FOR UNKNOWN INDICATION
     Dosage: 1.5 MG, WEEKLY
     Route: 064

REACTIONS (3)
  - Premature baby [Recovered/Resolved]
  - Low birth weight baby [Recovered/Resolved]
  - Foetal exposure during pregnancy [Recovered/Resolved]
